FAERS Safety Report 17869208 (Version 1)
Quarter: 2020Q2

REPORT INFORMATION
  Report Type: Spontaneous
  Country: CN (occurrence: CN)
  Receive Date: 20200608
  Receipt Date: 20200608
  Transmission Date: 20200714
  Serious: Yes (Other)
  Sender: FDA-Public Use
  Company Number: CN-ROCHE-2611661

PATIENT
  Age: 52 Year
  Sex: Female

DRUGS (7)
  1. PYROTINIB [Concomitant]
     Active Substance: PYROTINIB
     Indication: INVASIVE DUCTAL BREAST CARCINOMA
     Route: 048
     Dates: start: 20190101
  2. HERCEPTIN [Suspect]
     Active Substance: TRASTUZUMAB
     Indication: INVASIVE DUCTAL BREAST CARCINOMA
     Dosage: PCH REGIMEN FOR 6 CYCLES
     Route: 065
     Dates: start: 20170324
  3. HERCEPTIN [Suspect]
     Active Substance: TRASTUZUMAB
     Dosage: TAMOXIFEN + TRASTUZUMAB MAINTENANCE TREATMENT
     Route: 065
     Dates: start: 201801, end: 201803
  4. CAPECITABINE. [Concomitant]
     Active Substance: CAPECITABINE
     Indication: INVASIVE DUCTAL BREAST CARCINOMA
     Dosage: D1-D14
     Route: 048
     Dates: start: 20190101
  5. PACLITAXEL LIPOSOME [Concomitant]
     Active Substance: PACLITAXEL
     Indication: INVASIVE DUCTAL BREAST CARCINOMA
     Dosage: D1, D8, D15, PCH REGIMEN FOR 6 CYCLES
     Route: 065
     Dates: start: 20170324
  6. CARBOPLATIN. [Concomitant]
     Active Substance: CARBOPLATIN
     Indication: INVASIVE DUCTAL BREAST CARCINOMA
     Dosage: D1, D8, D15, PCH REGIMEN FOR 6 CYCLES
     Route: 065
     Dates: start: 20170324
  7. TAMOXIFEN [Concomitant]
     Active Substance: TAMOXIFEN
     Indication: INVASIVE DUCTAL BREAST CARCINOMA
     Dosage: TAMOXIFEN + TRASTUZUMAB MAINTENANCE TREATMENT
     Route: 065
     Dates: start: 20180101

REACTIONS (5)
  - Drug resistance [Unknown]
  - Bone marrow failure [Unknown]
  - Diarrhoea [Unknown]
  - Gastrointestinal disorder [Unknown]
  - Palmar-plantar erythrodysaesthesia syndrome [Unknown]
